FAERS Safety Report 6661150-2 (Version None)
Quarter: 2010Q1

REPORT INFORMATION
  Report Type: 
  Country: None (occurrence: None)
  Receive Date: 20100331
  Receipt Date: 20100329
  Transmission Date: 20100710
  Serious: Yes (Other)
  Sender: FDA-Public Use
  Company Number: A0844608A

PATIENT
  Sex: Female

DRUGS (4)
  1. TYKERB [Suspect]
     Dosage: 1250MG PER DAY
     Route: 048
     Dates: start: 20091126, end: 20100329
  2. XELODA [Concomitant]
     Dosage: 1500MG TWICE PER DAY
     Route: 048
  3. NORVASC [Concomitant]
  4. DIOVAN [Concomitant]
     Route: 065

REACTIONS (12)
  - ACCIDENTAL OVERDOSE [None]
  - BREAST CANCER [None]
  - CHEST PAIN [None]
  - DISCOMFORT [None]
  - DIZZINESS [None]
  - DRY SKIN [None]
  - FREQUENT BOWEL MOVEMENTS [None]
  - MEMORY IMPAIRMENT [None]
  - METASTASES TO LUNG [None]
  - METASTASIS [None]
  - PALMAR-PLANTAR ERYTHRODYSAESTHESIA SYNDROME [None]
  - SKIN CHAPPED [None]
